FAERS Safety Report 6881422-6 (Version None)
Quarter: 2010Q3

REPORT INFORMATION
  Report Type: 
  Country: None (occurrence: None)
  Receive Date: 20100728
  Receipt Date: 20100728
  Transmission Date: 20110219
  Serious: Yes (Hospitalization)
  Sender: FDA-Public Use
  Company Number: None

PATIENT
  Age: 46 Year
  Sex: Female
  Weight: 85.2762 kg

DRUGS (2)
  1. BENDAMUSTINE 100MG VIALS FOR RECONSTITUTION CEPHALON [Suspect]
     Indication: BREAST CANCER
     Dosage: 234MG DAYS 1+2 Q28DAYS IV
     Route: 042
     Dates: start: 20091228, end: 20100325
  2. ERLOTINIB HYDROCHLORIDE [Suspect]
     Indication: BREAST CANCER
     Dosage: 150MG 1 X DAY PO
     Route: 048
     Dates: start: 20100101, end: 20100413

REACTIONS (10)
  - BONE MARROW DISORDER [None]
  - CHEST PAIN [None]
  - DYSPNOEA [None]
  - FATIGUE [None]
  - FUNGAL INFECTION [None]
  - HYPOXIA [None]
  - MALIGNANT NEOPLASM PROGRESSION [None]
  - PANCYTOPENIA [None]
  - TRANSAMINASES INCREASED [None]
  - VIRAL INFECTION [None]
